FAERS Safety Report 4536914-1 (Version None)
Quarter: 2004Q4

REPORT INFORMATION
  Report Type: 
  Country: None (occurrence: None)
  Receive Date: 20041223
  Receipt Date: 20041216
  Transmission Date: 20050328
  Serious: Yes (Hospitalization)
  Sender: FDA-Public Use
  Company Number: IE-GLAXOSMITHKLINE-B0362677A

PATIENT
  Age: 42 Year
  Sex: Female

DRUGS (3)
  1. VENTOLIN [Suspect]
     Indication: ASTHMA
     Dosage: 2U THREE TIMES PER DAY
     Route: 055
     Dates: start: 20040602, end: 20040615
  2. COMBIVENT [Suspect]
     Indication: ASTHMA
     Dosage: 2U THREE TIMES PER DAY
     Route: 055
     Dates: start: 20040602, end: 20040615
  3. QUININE SULPHATE [Concomitant]

REACTIONS (2)
  - EUPHORIC MOOD [None]
  - HALLUCINATION [None]
